FAERS Safety Report 9348499 (Version 2)
Quarter: 2013Q3

REPORT INFORMATION
  Report Type: Spontaneous
  Country: US (occurrence: US)
  Receive Date: 20130614
  Receipt Date: 20130723
  Transmission Date: 20140515
  Serious: Yes (Death, Other)
  Sender: FDA-Public Use
  Company Number: US-009507513-1306USA004134

PATIENT
  Sex: Female

DRUGS (9)
  1. PEGINTRON [Suspect]
     Indication: CHRONIC MYELOID LEUKAEMIA
     Dosage: 150 MICROGRAM, QW
     Route: 058
  2. PRISTIQ [Concomitant]
     Dosage: UNK
  3. AMBIEN [Concomitant]
     Dosage: UNK
  4. LASIX (FUROSEMIDE) [Concomitant]
     Dosage: UNK
  5. PREDNISONE [Concomitant]
  6. CLONAZEPAM [Concomitant]
     Dosage: UNK
  7. TOPROL XL TABLETS [Concomitant]
     Dosage: UNK
     Route: 048
  8. NEXIUM [Concomitant]
     Dosage: UNK
  9. ASPIRIN [Concomitant]
     Dosage: UNK
     Route: 054

REACTIONS (2)
  - Chronic myeloid leukaemia [Fatal]
  - Eosinophilia [Fatal]
